FAERS Safety Report 18359603 (Version 1)
Quarter: 2020Q4

REPORT INFORMATION
  Report Type: Spontaneous
  Country: US (occurrence: US)
  Receive Date: 20201008
  Receipt Date: 20201008
  Transmission Date: 20210114
  Serious: Yes (Disabling)
  Sender: FDA-Public Use
  Company Number: US-SA-2020SA276010

PATIENT

DRUGS (1)
  1. DUPIXENT [Suspect]
     Active Substance: DUPILUMAB
     Indication: NASAL POLYPS
     Dosage: 300 MG, QOW
     Route: 058
     Dates: start: 20200625

REACTIONS (4)
  - Ocular hyperaemia [Unknown]
  - Condition aggravated [Unknown]
  - Lacrimation increased [Unknown]
  - Corrective lens user [Unknown]

NARRATIVE: CASE EVENT DATE: 2020
